FAERS Safety Report 23172970 (Version 1)
Quarter: 2023Q4

REPORT INFORMATION
  Report Type: Other
  Country: DE (occurrence: DE)
  Receive Date: 20231110
  Receipt Date: 20231110
  Transmission Date: 20240110
  Serious: Yes (Hospitalization, Other)
  Sender: FDA-Public Use
  Company Number: DE-VER-202300010

PATIENT
  Age: 52 Year
  Sex: Male

DRUGS (4)
  1. TRIPTORELIN PAMOATE [Suspect]
     Active Substance: TRIPTORELIN PAMOATE
     Indication: Paraphilia
     Dosage: ADMINISTERED EVERY THREE MONTHS
     Route: 030
     Dates: start: 2009
  2. TRIPTORELIN PAMOATE [Suspect]
     Active Substance: TRIPTORELIN PAMOATE
     Indication: Hormone suppression therapy
     Dosage: ADMINISTERED EVERY THREE MONTHS
     Route: 030
     Dates: start: 2009
  3. PROLIA [Concomitant]
     Active Substance: DENOSUMAB
     Indication: Osteoporosis
     Route: 065
     Dates: start: 201212
  4. PROLIA [Concomitant]
     Active Substance: DENOSUMAB
     Indication: Osteopenia
     Route: 065
     Dates: start: 201212

REACTIONS (6)
  - Acute kidney injury [Recovered/Resolved]
  - Osteopenia [Unknown]
  - Calculus urinary [Recovered/Resolved]
  - Urinary tract infection [Recovered/Resolved]
  - Hydronephrosis [Recovered/Resolved]
  - Osteoporosis [Unknown]
